FAERS Safety Report 9233005 (Version 1)
Quarter: 2013Q1

REPORT INFORMATION
  Report Type: Spontaneous
  Country: US (occurrence: None)
  Receive Date: 20121031
  Receipt Date: 20121031
  Transmission Date: 20140127
  Serious: Yes (Hospitalization)
  Sender: FDA-Public Use
  Company Number: PHEH2012US014185

PATIENT
  Age: 49 Year
  Sex: Female
  Weight: 85.5 kg

DRUGS (12)
  1. GILENYA (FTY) CAPSULE, 0.5MG [Suspect]
     Indication: MULTIPLE SCLEROSIS
     Route: 048
     Dates: start: 20120716
  2. OXYBUTYNIN (OXYBUTYNIN) [Concomitant]
  3. CALCIUM D (CALCIUM, COLECALCIFEROL) [Concomitant]
  4. CENTRUM (MINERALS NOS, VITAMINS NOS) [Concomitant]
  5. ACETAMINOPHEN W/CAFF./DIHYDROCODEINE BITARTR. (CAFFEINE, DIHYDROCODEINE BITARTRATE, PARACETAMOL) [Concomitant]
  6. ENABLEX (DARIFENACIN HYDROBROMIDE) TABLET [Concomitant]
  7. KLONOPIN (CLONAZEPAM) (TABLETS) [Concomitant]
  8. VITAMIN D (ERGOCALCIFEROL) CAPSULE [Concomitant]
  9. VESICARE (SOLIFENACIN) [Concomitant]
  10. NUVIGIL (ARMODAFINIL) [Concomitant]
  11. ABILIFY (ARIPIRAZOLE) [Concomitant]
  12. EFFEXOR (VENLAFAXINE HYDROCHLORIDE) UNKNOWN [Concomitant]

REACTIONS (6)
  - Bradycardia [None]
  - Multiple sclerosis relapse [None]
  - Fatigue [None]
  - Syncope [None]
  - Blood pressure decreased [None]
  - Mobility decreased [None]
